FAERS Safety Report 20000698 (Version 1)
Quarter: 2021Q4

REPORT INFORMATION
  Report Type: Spontaneous
  Country: GR (occurrence: GR)
  Receive Date: 20211027
  Receipt Date: 20211027
  Transmission Date: 20220304
  Serious: Yes (Other)
  Sender: FDA-Public Use
  Company Number: GR-BAUSCH-BL-2021-035456

PATIENT
  Age: 62 Year
  Sex: Male

DRUGS (6)
  1. BROMFENAC SODIUM [Suspect]
     Active Substance: BROMFENAC SODIUM
     Indication: Postoperative care
     Route: 047
     Dates: start: 20211011, end: 20211019
  2. CINOLONE [Concomitant]
     Indication: Postoperative care
     Route: 061
  3. DEXACHLOR [Concomitant]
     Indication: Postoperative care
     Route: 061
  4. CIMBRIZA [Concomitant]
     Indication: Product used for unknown indication
  5. TAFLUPROST\TIMOLOL [Concomitant]
     Active Substance: TAFLUPROST\TIMOLOL
     Indication: Product used for unknown indication
  6. ASPIRIN [Concomitant]
     Active Substance: ASPIRIN
     Indication: Carotid artery stenosis

REACTIONS (1)
  - Instillation site haemorrhage [Unknown]

NARRATIVE: CASE EVENT DATE: 20210101
